FAERS Safety Report 5859134-7 (Version None)
Quarter: 2008Q3

REPORT INFORMATION
  Report Type: 
  Country: None (occurrence: None)
  Receive Date: 20080825
  Receipt Date: 20080814
  Transmission Date: 20090109
  Serious: Yes (Death, Other)
  Sender: FDA-Public Use
  Company Number: 2008-03013

PATIENT
  Age: 47 Year
  Sex: Female

DRUGS (1)
  1. VELCADE [Suspect]
     Indication: MULTIPLE MYELOMA

REACTIONS (4)
  - DRUG INEFFECTIVE [None]
  - LUNG INFECTION [None]
  - PLEURAL EFFUSION [None]
  - RESPIRATORY FAILURE [None]
